FAERS Safety Report 5896183-7 (Version None)
Quarter: 2008Q3

REPORT INFORMATION
  Report Type: 
  Country: None (occurrence: None)
  Receive Date: 20080924
  Receipt Date: 20080519
  Transmission Date: 20090109
  Serious: Yes (Other)
  Sender: FDA-Public Use
  Company Number: US-ASTRAZENECA-2007UW03859

PATIENT
  Age: 51 Year
  Sex: Male
  Weight: 167.8 kg

DRUGS (1)
  1. SEROQUEL [Suspect]
     Indication: SCHIZOAFFECTIVE DISORDER
     Dosage: 100-800 MG
     Route: 048
     Dates: start: 19980101

REACTIONS (2)
  - DIABETES MELLITUS [None]
  - PANCREATITIS ACUTE [None]
